FAERS Safety Report 24047573 (Version 1)
Quarter: 2024Q3

REPORT INFORMATION
  Report Type: Report from Study
  Country: CA (occurrence: CA)
  Receive Date: 20240703
  Receipt Date: 20240703
  Transmission Date: 20241017
  Serious: Yes (Hospitalization, Other)
  Sender: HLS THERAPEUTICS
  Company Number: CA-HLS-202401601

PATIENT
  Age: 17 Year
  Sex: Male

DRUGS (1)
  1. CLOZARIL [Suspect]
     Active Substance: CLOZAPINE
     Indication: Behavioural therapy
     Dosage: 100 MG BY MOUTH EVERY MORNING, 225 MG BY MOUTH  EVERY BEDTIME
     Route: 048
     Dates: start: 20240521

REACTIONS (6)
  - C-reactive protein increased [Not Recovered/Not Resolved]
  - QRS axis abnormal [Unknown]
  - Off label use [Unknown]
  - Off label use [Unknown]
  - Tachycardia [Unknown]
  - Intentional self-injury [Unknown]

NARRATIVE: CASE EVENT DATE: 20240521
